FAERS Safety Report 4585715-7 (Version None)
Quarter: 2005Q1

REPORT INFORMATION
  Report Type: 
  Country: None (occurrence: None)
  Receive Date: 20050217
  Receipt Date: 20050119
  Transmission Date: 20050727
  Serious: Yes (Death, Hospitalization)
  Sender: FDA-Public Use
  Company Number: PHBS2005JP01081

PATIENT
  Age: 87 Year
  Sex: Male

DRUGS (4)
  1. TEGRETOL [Suspect]
     Indication: CONVULSION
     Dosage: 400 MG/DAY
     Route: 048
     Dates: start: 20050119, end: 20050119
  2. MUCOSTA [Concomitant]
     Route: 048
     Dates: start: 20050119, end: 20050125
  3. MYONAL [Concomitant]
     Route: 048
     Dates: start: 20050119, end: 20050125
  4. OSTELUC [Concomitant]
     Route: 048
     Dates: start: 20050119, end: 20050125

REACTIONS (5)
  - HAEMOGLOBIN DECREASED [None]
  - MYELOID LEUKAEMIA [None]
  - PANCYTOPENIA [None]
  - PLATELET COUNT DECREASED [None]
  - WHITE BLOOD CELL COUNT DECREASED [None]
